FAERS Safety Report 5394166-7 (Version None)
Quarter: 2007Q3

REPORT INFORMATION
  Report Type: 
  Country: None (occurrence: None)
  Receive Date: 20070723
  Receipt Date: 20070622
  Transmission Date: 20080115
  Serious: Yes (Hospitalization, Other)
  Sender: FDA-Public Use
  Company Number: CHWYE899122JUN07

PATIENT
  Age: 83 Year
  Sex: Female
  Weight: 67 kg

DRUGS (9)
  1. TAZOBAC [Interacting]
     Indication: PNEUMONIA BACTERIAL
     Route: 042
     Dates: start: 20070112, end: 20070122
  2. TORSEMIDE [Concomitant]
     Indication: CARDIAC FAILURE CONGESTIVE
     Route: 048
     Dates: start: 20070110, end: 20070116
  3. ZOLPIDEM TARTRATE [Concomitant]
     Indication: SLEEP DISORDER
     Route: 048
     Dates: start: 20061218
  4. SINTROM [Concomitant]
     Indication: ATRIAL FIBRILLATION
     Route: 048
  5. SINTROM [Concomitant]
     Indication: ATRIAL FLUTTER
  6. BELOC [Concomitant]
     Indication: ESSENTIAL HYPERTENSION
     Route: 048
     Dates: start: 20061217
  7. LISINOPRIL [Concomitant]
     Indication: CARDIAC FAILURE CONGESTIVE
     Route: 048
     Dates: start: 20061217
  8. DEPAKENE [Interacting]
     Indication: EPILEPSY
     Route: 048
     Dates: start: 20061101
  9. LAXOBERON [Suspect]
     Indication: CONSTIPATION
     Route: 048

REACTIONS (3)
  - DRUG INTERACTION [None]
  - GRAND MAL CONVULSION [None]
  - HYPOKALAEMIA [None]
